FAERS Safety Report 5766689-X (Version None)
Quarter: 2008Q2

REPORT INFORMATION
  Report Type: 
  Country: None (occurrence: None)
  Receive Date: 20080610
  Receipt Date: 20080610
  Transmission Date: 20081010
  Serious: No
  Sender: FDA-Public Use
  Company Number: None

PATIENT
  Age: 15 Month
  Sex: Male
  Weight: 24.5 kg

DRUGS (2)
  1. SINGULAIR [Suspect]
     Indication: COUGH
     Dosage: 1 PACKAGE ONCE A DAY PO
     Route: 048
     Dates: start: 20080606, end: 20080609
  2. SINGULAIR [Suspect]
     Indication: HYPERSENSITIVITY
     Dosage: 1 PACKAGE ONCE A DAY PO
     Route: 048
     Dates: start: 20080606, end: 20080609

REACTIONS (7)
  - ANGER [None]
  - EATING DISORDER [None]
  - INSOMNIA [None]
  - MOOD ALTERED [None]
  - PERSONALITY DISORDER OF CHILDHOOD [None]
  - RESTLESSNESS [None]
  - SLEEP DISORDER [None]
